FAERS Safety Report 9790836 (Version 1)
Quarter: 2013Q4

REPORT INFORMATION
  Report Type: Spontaneous
  Country: US (occurrence: US)
  Receive Date: 20131231
  Receipt Date: 20131231
  Transmission Date: 20140711
  Serious: No
  Sender: FDA-Public Use
  Company Number: US-BAYER-2013-159241

PATIENT
  Sex: Female

DRUGS (8)
  1. ALEVE CAPLET [Suspect]
     Indication: GROIN PAIN
     Dosage: DF
  2. ALEVE CAPLET [Suspect]
     Indication: PAIN IN EXTREMITY
  3. BAYER GENUINE ASPIRIN ORIGINAL STRENGTH [Suspect]
     Indication: GROIN PAIN
     Dosage: UNK
  4. BAYER GENUINE ASPIRIN ORIGINAL STRENGTH [Suspect]
     Indication: PAIN IN EXTREMITY
  5. IBUPROFEN [Suspect]
     Indication: GROIN PAIN
  6. IBUPROFEN [Suspect]
     Indication: PAIN IN EXTREMITY
  7. TYLENOL [PARACETAMOL] [Suspect]
     Indication: GROIN PAIN
  8. TYLENOL [PARACETAMOL] [Suspect]
     Indication: PAIN IN EXTREMITY

REACTIONS (1)
  - Drug ineffective [None]
